FAERS Safety Report 9496469 (Version 2)
Quarter: 2013Q4

REPORT INFORMATION
  Report Type: Spontaneous
  Country: JP (occurrence: JP)
  Receive Date: 20130904
  Receipt Date: 20131015
  Transmission Date: 20140711
  Serious: Yes (Other)
  Sender: FDA-Public Use
  Company Number: PHHY2013JP095698

PATIENT
  Sex: 0

DRUGS (2)
  1. NEORAL [Suspect]
     Indication: INTERSTITIAL LUNG DISEASE
     Route: 048
  2. NEORAL [Suspect]
     Indication: OFF LABEL USE

REACTIONS (3)
  - Respiratory failure [Unknown]
  - Disease progression [Unknown]
  - Dysphagia [Unknown]
